FAERS Safety Report 8154585-2 (Version None)
Quarter: 2012Q1

REPORT INFORMATION
  Report Type: 
  Country: None (occurrence: None)
  Receive Date: 20120221
  Receipt Date: 20120201
  Transmission Date: 20120608
  Serious: No
  Sender: FDA-Public Use
  Company Number: US-B.I. PHARMACEUTICALS,INC./RIDGEFIELD-2005-BP-20040BP

PATIENT
  Sex: Male
  Weight: 82.1 kg

DRUGS (1)
  1. MIRAPEX [Suspect]
     Indication: PARKINSON'S DISEASE
     Route: 048
     Dates: start: 20010101

REACTIONS (8)
  - OBSESSIVE-COMPULSIVE DISORDER [None]
  - PATHOLOGICAL GAMBLING [None]
  - MOOD SWINGS [None]
  - DAYDREAMING [None]
  - EMOTIONAL DISTRESS [None]
  - PAIN [None]
  - RESTLESSNESS [None]
  - NIGHTMARE [None]
